FAERS Safety Report 5143862-5 (Version None)
Quarter: 2006Q4

REPORT INFORMATION
  Report Type: 
  Country: None (occurrence: None)
  Receive Date: 20061106
  Receipt Date: 20061027
  Transmission Date: 20070319
  Serious: Yes (Death, Hospitalization, Other)
  Sender: FDA-Public Use
  Company Number: GB-JNJFOC-20060305290

PATIENT
  Sex: Female
  Weight: 71 kg

DRUGS (9)
  1. REMICADE [Suspect]
     Indication: RHEUMATOID ARTHRITIS
     Route: 042
  2. METHOTREXATE [Concomitant]
     Route: 065
  3. PREDNISOLONE [Concomitant]
     Route: 065
  4. AMITRIPTYLINE HCL [Concomitant]
     Route: 065
  5. CO-PROXAMOL [Concomitant]
     Route: 065
  6. FOLIC ACID [Concomitant]
     Route: 065
  7. RANITIDINE [Concomitant]
     Route: 065
  8. RISEDRONATE SODIUM [Concomitant]
     Route: 065
  9. LEVOTHYROXINE SODIUM [Concomitant]
     Route: 065

REACTIONS (2)
  - BRONCHOPNEUMONIA [None]
  - OESOPHAGEAL CANCER METASTATIC [None]
